FAERS Safety Report 13519458 (Version 2)
Quarter: 2018Q1

REPORT INFORMATION
  Report Type: Spontaneous
  Country: US (occurrence: US)
  Receive Date: 20170505
  Receipt Date: 20180207
  Transmission Date: 20180508
  Serious: Yes (Death, Life-Threatening, Hospitalization)
  Sender: FDA-Public Use
  Company Number: US-B.I. PHARMACEUTICALS,INC./RIDGEFIELD-2017-BI-025591

PATIENT
  Age: 81 Year
  Sex: Female

DRUGS (1)
  1. PRADAXA [Suspect]
     Active Substance: DABIGATRAN ETEXILATE MESYLATE
     Indication: ATRIAL FIBRILLATION
     Route: 065
     Dates: start: 20130919

REACTIONS (7)
  - Septic shock [Unknown]
  - Multiple organ dysfunction syndrome [Unknown]
  - Metabolic acidosis [Unknown]
  - Anaemia [Unknown]
  - Duodenal ulcer perforation [Unknown]
  - Gastrointestinal haemorrhage [Fatal]
  - Coagulopathy [Unknown]

NARRATIVE: CASE EVENT DATE: 20160422
